FAERS Safety Report 6641369-7 (Version None)
Quarter: 2010Q1

REPORT INFORMATION
  Report Type: 
  Country: None (occurrence: None)
  Receive Date: 20100318
  Receipt Date: 20100309
  Transmission Date: 20100710
  Serious: Yes (Hospitalization)
  Sender: FDA-Public Use
  Company Number: GB-ROCHE-548303

PATIENT
  Sex: Female
  Weight: 95 kg

DRUGS (4)
  1. BEVACIZUMAB [Suspect]
     Dosage: PER PROTOCOL GIVEN ON DAY 1 EVERY 3 WEEKS.
     Route: 042
     Dates: start: 20080122
  2. CARBOPLATIN [Suspect]
     Dosage: PER PROTOCOL GIVEN OVER 30 - 60 MINUTES.
     Route: 042
     Dates: start: 20080122
  3. PACLITAXEL [Suspect]
     Dosage: PER PROTOCOL DOSE FORM REPORTED AS INFUSION GIVEN OVER 3 HOURS.
     Route: 042
     Dates: start: 20080122
  4. PARACETAMOL [Concomitant]

REACTIONS (3)
  - ARTHRALGIA [None]
  - JOINT SWELLING [None]
  - RASH [None]
